FAERS Safety Report 8255151-0 (Version None)
Quarter: 2012Q2

REPORT INFORMATION
  Report Type: 
  Country: None (occurrence: None)
  Receive Date: 20120403
  Receipt Date: 20120328
  Transmission Date: 20120825
  Serious: Yes (Hospitalization)
  Sender: FDA-Public Use
  Company Number: US-JNJFOC-20110705693

PATIENT
  Age: 72 Year
  Sex: Male
  Weight: 104.33 kg

DRUGS (13)
  1. PLAVIX [Concomitant]
     Indication: ANTICOAGULANT THERAPY
     Route: 065
  2. TYLENOL-500 [Suspect]
     Route: 048
  3. ASPIRIN [Concomitant]
     Indication: CARDIAC DISORDER
     Route: 065
  4. FUROSEMIDE [Concomitant]
     Indication: DIURETIC THERAPY
     Route: 065
  5. DIGOXIN [Concomitant]
     Indication: CARDIAC DISORDER
     Route: 065
  6. HUMULIN N [Concomitant]
     Indication: DIABETES MELLITUS
     Dosage: 18 UNITS IN AM AND 23 UNITS IN PM
     Route: 065
  7. TYLENOL-500 [Suspect]
     Indication: ANALGESIC THERAPY
     Route: 048
  8. CHOLESTYRAMINE [Concomitant]
     Indication: BLOOD CHOLESTEROL INCREASED
     Route: 065
  9. FOLIC ACID [Concomitant]
     Indication: NUTRITIONAL SUPPORT
     Route: 065
  10. SERTRALINE HYDROCHLORIDE [Concomitant]
     Indication: DEPRESSION
     Route: 065
  11. OMEPRAZOLE [Concomitant]
     Route: 065
  12. POTASSIUM [Concomitant]
     Indication: NUTRITIONAL SUPPORT
     Route: 065
  13. CAPOTEN [Concomitant]
     Indication: HYPERTENSION
     Route: 065

REACTIONS (2)
  - VOMITING [None]
  - PRODUCT QUALITY ISSUE [None]
